FAERS Safety Report 7661447-3 (Version None)
Quarter: 2011Q3

REPORT INFORMATION
  Report Type: 
  Country: None (occurrence: None)
  Receive Date: 20110805
  Receipt Date: 20101025
  Transmission Date: 20111222
  Serious: No
  Sender: FDA-Public Use
  Company Number: US-ABBOTT-10P-163-0679027-00

PATIENT
  Sex: Male
  Weight: 83.99 kg

DRUGS (11)
  1. NIASPAN [Suspect]
     Indication: LOW DENSITY LIPOPROTEIN INCREASED
     Dates: start: 20101006
  2. NEURONTIN [Concomitant]
     Indication: CEREBROVASCULAR ACCIDENT
  3. OMEPRAZOLE [Concomitant]
     Indication: HIATUS HERNIA
  4. FENOFIBRATE [Concomitant]
     Indication: BLOOD CHOLESTEROL INCREASED
  5. VITAMIN D [Concomitant]
     Indication: PRODUCT USED FOR UNKNOWN INDICATION
  6. PRILOSEC [Concomitant]
     Indication: HIATUS HERNIA
  7. CRESTOR [Concomitant]
     Indication: BLOOD CHOLESTEROL INCREASED
  8. VICODIN [Concomitant]
     Indication: PAIN
     Dates: start: 20030101
  9. TRANXENE [Concomitant]
     Indication: ANXIETY
  10. IBUPROFEN [Concomitant]
     Indication: PRODUCT USED FOR UNKNOWN INDICATION
  11. LISINOPRIL [Concomitant]
     Indication: HYPERTENSION
     Dosage: 20/12.5 MG-TAKES 1/2 TAB DAILY

REACTIONS (2)
  - FLUSHING [None]
  - ABDOMINAL DISCOMFORT [None]
